FAERS Safety Report 6988483-4 (Version None)
Quarter: 2010Q3

REPORT INFORMATION
  Report Type: 
  Country: None (occurrence: None)
  Receive Date: 20100916
  Receipt Date: 20100726
  Transmission Date: 20110219
  Serious: Yes (Other)
  Sender: FDA-Public Use
  Company Number: US-NOVOPROD-311979

PATIENT
  Sex: Female

DRUGS (3)
  1. NOVOLOG MIX 70/30 [Suspect]
     Indication: TYPE 2 DIABETES MELLITUS
     Dosage: 38 IU, BID
  2. NOVOLOG MIX 70/30 [Suspect]
     Dosage: 38 IU, BID
  3. NOVOLOG MIX 70/30 [Suspect]
     Dosage: 38 IU, BID

REACTIONS (4)
  - BLOOD GLUCOSE INCREASED [None]
  - HEADACHE [None]
  - INFECTION [None]
  - NAUSEA [None]
